FAERS Safety Report 13717683 (Version 1)
Quarter: 2017Q3

REPORT INFORMATION
  Report Type: Not Available
  Country: None (occurrence: US)
  Receive Date: 20170705
  Receipt Date: 20170705
  Transmission Date: 20171127
  Serious: No
  Sender: FDA-Public Use
  Company Number: US-AKORN-61783

PATIENT
  Age: 37 Year
  Sex: Male

DRUGS (1)
  1. SUFENTA [Suspect]
     Active Substance: SUFENTANIL CITRATE

REACTIONS (6)
  - Urticaria [None]
  - Rash [None]
  - Vomiting [None]
  - Hypersensitivity [None]
  - Nausea [None]
  - Diarrhoea [None]
